FAERS Safety Report 7277805-5 (Version None)
Quarter: 2011Q1

REPORT INFORMATION
  Report Type: 
  Country: None (occurrence: None)
  Receive Date: 20110207
  Receipt Date: 20110127
  Transmission Date: 20110831
  Serious: Yes (Death, Life-Threatening)
  Sender: FDA-Public Use
  Company Number: ES-JNJFOC-20110107803

PATIENT
  Age: 45 Year
  Sex: Male
  Weight: 75 kg

DRUGS (6)
  1. LOPERAMIDE [Concomitant]
     Indication: POUCHITIS
     Route: 048
  2. CODEINE SULFATE [Concomitant]
     Indication: POUCHITIS
     Route: 048
  3. REMICADE [Suspect]
     Indication: INFLAMMATORY BOWEL DISEASE
     Route: 042
  4. CIPROFLOXACIN [Concomitant]
     Indication: POUCHITIS
     Route: 048
  5. REMICADE [Suspect]
     Indication: POUCHITIS
     Route: 042
  6. AZATHIOPRINE [Concomitant]
     Indication: POUCHITIS
     Route: 048

REACTIONS (1)
  - COMPLETED SUICIDE [None]
